FAERS Safety Report 5791994-0 (Version None)
Quarter: 2008Q2

REPORT INFORMATION
  Report Type: 
  Country: None (occurrence: None)
  Receive Date: 20080618
  Receipt Date: 20080307
  Transmission Date: 20081010
  Serious: Yes (Hospitalization)
  Sender: FDA-Public Use
  Company Number: 200811535US

PATIENT
  Age: 66 Year
  Sex: Female

DRUGS (11)
  1. LANTUS [Suspect]
     Indication: TYPE 2 DIABETES MELLITUS
     Dosage: 90 U HS INJ
     Dates: start: 20060705
  2. ADENOSINE (TRICOR /00090101/) [Concomitant]
  3. FUROSEMIDE [Concomitant]
  4. WARFARIN SODIUM [Concomitant]
  5. LANOXIN [Concomitant]
  6. POTASSIUM CHLORIDE [Concomitant]
  7. COLESEVELAM HYDROCHLORIDE (WELCHOL) [Concomitant]
  8. REPAGLINIDE (PRANDIN /01393601/) [Concomitant]
  9. ROSUVASTATIN (CRESTOR /01588601/) [Concomitant]
  10. ALTACE [Concomitant]
  11. METFORMIN HCL [Concomitant]

REACTIONS (1)
  - HYPOGLYCAEMIA [None]
